FAERS Safety Report 11612280 (Version 1)
Quarter: 2015Q4

REPORT INFORMATION
  Report Type: Spontaneous
  Country: US (occurrence: US)
  Receive Date: 20151008
  Receipt Date: 20151008
  Transmission Date: 20160304
  Serious: No
  Sender: FDA-Public Use
  Company Number: US-WATSON-2014-27096

PATIENT
  Sex: Female

DRUGS (1)
  1. TRIAMTERENE/HYDROCHLOROTHIAZIDE (WATSON LABORATORIES) [Suspect]
     Active Substance: HYDROCHLOROTHIAZIDE\TRIAMTERENE
     Indication: PRODUCT USED FOR UNKNOWN INDICATION

REACTIONS (1)
  - Hyperacusis [Unknown]
